FAERS Safety Report 14793710 (Version 2)
Quarter: 2018Q3

REPORT INFORMATION
  Report Type: Spontaneous
  Country: IT (occurrence: IT)
  Receive Date: 20180423
  Receipt Date: 20180813
  Transmission Date: 20181010
  Serious: Yes (Other)
  Sender: FDA-Public Use
  Company Number: IT-GLAXOSMITHKLINE-IT2018063677

PATIENT
  Age: 46 Year
  Sex: Male

DRUGS (2)
  1. BRUFEN (IBUPROFEN) [Suspect]
     Active Substance: IBUPROFEN
     Indication: PYREXIA
     Dosage: 1 DF, UNK
     Route: 048
     Dates: start: 20171226, end: 20171226
  2. VOLTADVANCE [Suspect]
     Active Substance: DICLOFENAC SODIUM
     Indication: BACK PAIN
     Dosage: IN TOTAL
     Route: 048
     Dates: start: 20171226, end: 20171226

REACTIONS (1)
  - Abdominal pain upper [Recovering/Resolving]

NARRATIVE: CASE EVENT DATE: 20180101
